FAERS Safety Report 9799295 (Version 2)
Quarter: 2014Q1

REPORT INFORMATION
  Report Type: Spontaneous
  Country: US (occurrence: US)
  Receive Date: 20140106
  Receipt Date: 20140210
  Transmission Date: 20141002
  Serious: No
  Sender: FDA-Public Use
  Company Number: US-009507513-1401USA001405

PATIENT
  Age: 86 Year
  Sex: Female
  Weight: 88.44 kg

DRUGS (8)
  1. OXYTROL FOR WOMEN [Suspect]
     Indication: HYPERTONIC BLADDER
     Dosage: UNK, UNKNOWN
     Route: 062
     Dates: start: 20130915, end: 20131219
  2. GLUCOTROL [Concomitant]
     Indication: DIABETES MELLITUS
     Dosage: UNK, UNKNOWN
  3. LOPRESSOR [Concomitant]
     Indication: HYPERTENSION
     Dosage: UNK, UNKNOWN
  4. CROFELEMER [Concomitant]
     Indication: HYPERTENSION
     Dosage: UNK, UNKNOWN
  5. VASOTEC [Concomitant]
     Indication: HYPERTENSION
     Dosage: UNK, UNKNOWN
  6. AMIODARONE [Concomitant]
     Indication: HYPERTENSION
     Dosage: UNK, UNKNOWN
  7. POTASSIUM (UNSPECIFIED) [Concomitant]
     Indication: HYPERTENSION
     Dosage: UNK, UNKNOWN
  8. SPIRONOLACTONE [Concomitant]
     Indication: HYPERTENSION
     Dosage: UNK, UNKNOWN

REACTIONS (3)
  - Incorrect drug administration duration [Unknown]
  - Off label use [Unknown]
  - Drug ineffective [Unknown]
